FAERS Safety Report 9916486 (Version 1)
Quarter: 2014Q1

REPORT INFORMATION
  Report Type: Spontaneous
  Country: GB (occurrence: None)
  Receive Date: 20140219
  Receipt Date: 20140219
  Transmission Date: 20141002
  Serious: Yes (Other)
  Sender: FDA-Public Use
  Company Number: 2191288

PATIENT
  Age: 41 Year
  Sex: Female

DRUGS (1)
  1. DEXMEDETOMIDINE HYDROCHLORIDE [Suspect]
     Indication: AGITATION
     Dosage: INTRAVNEOUS (NOT OTHERWISE SPECIFIED)
     Route: 042
     Dates: start: 20140125, end: 20140126

REACTIONS (2)
  - Bradycardia [None]
  - Blood pressure abnormal [None]
